FAERS Safety Report 7771649-3 (Version None)
Quarter: 2011Q3

REPORT INFORMATION
  Report Type: 
  Country: None (occurrence: None)
  Receive Date: 20110922
  Receipt Date: 20100301
  Transmission Date: 20111222
  Serious: No
  Sender: FDA-Public Use
  Company Number: US-ASTRAZENECA-2010SE54118

PATIENT
  Age: 18107 Day
  Sex: Female

DRUGS (4)
  1. SEROQUEL [Suspect]
     Dosage: 200-900 MG
     Route: 048
     Dates: start: 20021210
  2. TRILEPTAL [Concomitant]
     Dates: start: 20030710
  3. NEURONTIN [Concomitant]
     Dosage: 800-900 MG
     Dates: start: 20021210
  4. PROLIXIN [Concomitant]
     Dosage: 30-75 MG
     Dates: start: 20030710

REACTIONS (7)
  - DIABETES MELLITUS [None]
  - HELICOBACTER GASTRITIS [None]
  - HYPERTENSION [None]
  - GASTROOESOPHAGEAL REFLUX DISEASE [None]
  - SPINAL OSTEOARTHRITIS [None]
  - OSTEOARTHRITIS [None]
  - OBESITY [None]
